FAERS Safety Report 9611235 (Version 2)
Quarter: 2013Q4

REPORT INFORMATION
  Report Type: Spontaneous
  Country: GB (occurrence: GB)
  Receive Date: 20131010
  Receipt Date: 20131015
  Transmission Date: 20140711
  Serious: Yes (Other)
  Sender: FDA-Public Use
  Company Number: GB-ROCHE-1284217

PATIENT
  Age: 57 Year
  Sex: Male

DRUGS (3)
  1. TRIBAVIRIN [Suspect]
     Indication: HEPATITIS C
     Route: 048
     Dates: start: 20121114
  2. PEGINTERFERON ALFA-2B [Suspect]
     Indication: HEPATITIS C
     Route: 058
     Dates: start: 20121114
  3. TELAPREVIR [Suspect]
     Indication: HEPATITIS C
     Route: 048

REACTIONS (10)
  - Anaemia [Recovering/Resolving]
  - Proctalgia [Unknown]
  - Anal pruritus [Not Recovered/Not Resolved]
  - Fatigue [Not Recovered/Not Resolved]
  - Influenza like illness [Not Recovered/Not Resolved]
  - Mouth ulceration [Not Recovered/Not Resolved]
  - Myalgia [Not Recovered/Not Resolved]
  - Proctalgia [Unknown]
  - Rash [Not Recovered/Not Resolved]
  - Urinary tract infection [Unknown]
